FAERS Safety Report 25711969 (Version 1)
Quarter: 2025Q3

REPORT INFORMATION
  Report Type: Spontaneous
  Country: US (occurrence: US)
  Receive Date: 20250821
  Receipt Date: 20250821
  Transmission Date: 20251021
  Serious: No
  Sender: PFIZER
  Company Number: US-PFIZER INC-202500166728

PATIENT
  Age: 41 Year
  Sex: Female

DRUGS (2)
  1. CIBINQO [Suspect]
     Active Substance: ABROCITINIB
     Indication: Lichen planopilaris
     Route: 048
  2. CIBINQO [Suspect]
     Active Substance: ABROCITINIB
     Indication: Dermatitis atopic
     Dosage: 100 MG, DAILY 1.0 TABLET, EVERY DAY, 30 DAYS, 30 TABLET(S), 2 REFILLS.
     Route: 048

REACTIONS (5)
  - Drug effective for unapproved indication [Unknown]
  - Pruritus [Unknown]
  - Skin irritation [Unknown]
  - Condition aggravated [Unknown]
  - Off label use [Unknown]
